FAERS Safety Report 5468810-X (Version None)
Quarter: 2007Q3

REPORT INFORMATION
  Report Type: 
  Country: None (occurrence: None)
  Receive Date: 20070926
  Receipt Date: 20070921
  Transmission Date: 20080115
  Serious: Yes (Other)
  Sender: FDA-Public Use
  Company Number: DE-BOEHRINGER INGELHEIM PHARMACEUTICALS, INC.-2007-DE-05668DE

PATIENT
  Sex: Female

DRUGS (3)
  1. ATROVENT [Suspect]
     Route: 048
  2. FORMOTEROL FUMARATE [Suspect]
     Route: 048
  3. PARACETAMOL 500 [Suspect]
     Route: 048

REACTIONS (3)
  - DRUG ABUSER [None]
  - OVERDOSE [None]
  - SUICIDE ATTEMPT [None]
